FAERS Safety Report 15211283 (Version 1)
Quarter: 2018Q3

REPORT INFORMATION
  Report Type: Spontaneous
  Country: US (occurrence: US)
  Receive Date: 20180629
  Receipt Date: 20180629
  Transmission Date: 20181010
  Serious: No
  Sender: FDA-Public Use
  Company Number: None

PATIENT
  Sex: Female

DRUGS (2)
  1. METHOCARBAM [Concomitant]
     Active Substance: METHOCARBAMOL
  2. PROLIA [Suspect]
     Active Substance: DENOSUMAB
     Indication: SENILE OSTEOPOROSIS
     Dosage: 60 MG Q 6 MONTHS SUBCUTANEOUS
     Route: 058
     Dates: start: 20150918

REACTIONS (1)
  - Neck surgery [None]
